FAERS Safety Report 16787336 (Version 1)
Quarter: 2019Q3

REPORT INFORMATION
  Report Type: Spontaneous
  Country: DE (occurrence: DE)
  Receive Date: 20190909
  Receipt Date: 20190909
  Transmission Date: 20191005
  Serious: Yes (Congenital Anomaly)
  Sender: FDA-Public Use
  Company Number: PHHY2019DE205337

PATIENT
  Age: 1 Day
  Sex: Male
  Weight: 3.68 kg

DRUGS (5)
  1. CLOMIFENE [Concomitant]
     Active Substance: CLOMIPHENE
     Indication: FOETAL EXPOSURE DURING PREGNANCY
     Dosage: MATERNAL DOSE: UNK
     Route: 064
  2. L-THYROXINE [Concomitant]
     Active Substance: LEVOTHYROXINE
     Indication: FOETAL EXPOSURE DURING PREGNANCY
     Dosage: MATERNAL DOSE: 100 [?G/D ]/ 75-100?G/D
     Route: 064
     Dates: start: 20170907, end: 20180609
  3. FOLSAEURE [Concomitant]
     Active Substance: FOLIC ACID
     Indication: FOETAL EXPOSURE DURING PREGNANCY
     Dosage: MATERNAL DOSE: UNK
     Route: 064
  4. PARACETAMOL [Suspect]
     Active Substance: ACETAMINOPHEN
     Indication: FOETAL EXPOSURE DURING PREGNANCY
     Dosage: MATERNAL DOSE: 1000 [MG/D ]/ IF REQUIRED, TWICE PER WEEK, 500-1000MG/D
     Route: 064
  5. PANTOPRAZOL [Concomitant]
     Active Substance: PANTOPRAZOLE SODIUM
     Indication: FOETAL EXPOSURE DURING PREGNANCY
     Dosage: MATERNAL DOSE: 40 [MG/D ]/ IF REQUIRED, CA. EVERY SECOND DAY
     Route: 064
     Dates: start: 20170907, end: 20180609

REACTIONS (6)
  - Atrial septal defect [Unknown]
  - Right ventricular hypertrophy [Recovered/Resolved]
  - Foetal exposure during pregnancy [Unknown]
  - Left ventricular false tendon [Unknown]
  - Newborn persistent pulmonary hypertension [Recovered/Resolved]
  - Ductus arteriosus premature closure [Recovered/Resolved]

NARRATIVE: CASE EVENT DATE: 20180609
